FAERS Safety Report 18018098 (Version 1)
Quarter: 2020Q3

REPORT INFORMATION
  Report Type: Spontaneous
  Country: US (occurrence: US)
  Receive Date: 20200713
  Receipt Date: 20200713
  Transmission Date: 20201103
  Serious: No
  Sender: FDA-Public Use
  Company Number: None

PATIENT
  Age: 61 Year
  Sex: Female
  Weight: 72.6 kg

DRUGS (17)
  1. DICYCLOMINE 20 MG FOUR TIMES DAILY [Concomitant]
     Dates: start: 20200711
  2. FAMOTIDINE 20 MG TWO TIMES DAILY [Concomitant]
     Dates: start: 20200711
  3. PSEUDOEPHEDRINE 30 MG FOUR TIMES DAILY [Concomitant]
     Dates: start: 20200711
  4. REMDESIVIR. [Suspect]
     Active Substance: REMDESIVIR
     Indication: COVID-19
     Route: 042
     Dates: start: 20200711, end: 20200711
  5. AZITHROMYCIN 500 MG DAILY [Concomitant]
     Dates: start: 20200712
  6. ZINC SULFATE 220 MG DAILY [Concomitant]
     Dates: start: 20200711
  7. CHOLECALCIFEROL 2000 UNITS DAILY [Concomitant]
     Dates: start: 20200712
  8. ENOXAPARIN 40 MG DAILY [Concomitant]
     Dates: start: 20200711
  9. DEXAMETHASONE 6 MG DAILY [Concomitant]
     Dates: start: 20200712
  10. LORATADINE 10 MG DAILY [Concomitant]
     Dates: start: 20200712
  11. ALBUTEROL HFA INHALER [Concomitant]
     Active Substance: ALBUTEROL
     Dates: start: 20200711, end: 20200712
  12. ESCITALOPRAM [Concomitant]
     Active Substance: ESCITALOPRAM OXALATE
     Dates: start: 20200712
  13. VERAPAMIL 240 MG DAILY [Concomitant]
     Dates: start: 20200712
  14. ACETAMINOPHEN 650 MG EVERY 4 HOURS AS NEEDED [Concomitant]
     Dates: start: 20200712
  15. REMDESIVIR. [Suspect]
     Active Substance: REMDESIVIR
     Indication: COVID-19
     Route: 042
     Dates: start: 20200712, end: 20200713
  16. CYANOCOBALAMIN 1000 MCG DAILY [Concomitant]
     Dates: start: 20200712
  17. PRENATAL PLUS VITAMIN DAILY [Concomitant]
     Dates: start: 20200712

REACTIONS (1)
  - Alanine aminotransferase increased [None]

NARRATIVE: CASE EVENT DATE: 20200713
